FAERS Safety Report 23898151 (Version 1)
Quarter: 2024Q2

REPORT INFORMATION
  Report Type: Spontaneous
  Country: US (occurrence: None)
  Receive Date: 20240524
  Receipt Date: 20240524
  Transmission Date: 20240715
  Serious: Yes (Hospitalization, Other)
  Sender: FDA-Public Use
  Company Number: 2024A117144

PATIENT
  Sex: Female

DRUGS (6)
  1. SAPHNELO [Suspect]
     Active Substance: ANIFROLUMAB\ANIFROLUMAB-FNIA
     Indication: Systemic lupus erythematosus
     Route: 040
     Dates: start: 202310
  2. PREDNISONE [Concomitant]
     Active Substance: PREDNISONE
  3. FLUCONAZOLE [Concomitant]
     Active Substance: FLUCONAZOLE
  4. VORICONAZOLE [Concomitant]
     Active Substance: VORICONAZOLE
  5. TERBINAFINE [Concomitant]
     Active Substance: TERBINAFINE
     Indication: Candida infection
  6. CELECOXIB [Concomitant]
     Active Substance: CELECOXIB
     Indication: Systemic lupus erythematosus

REACTIONS (2)
  - Oral candidiasis [Not Recovered/Not Resolved]
  - Oesophageal candidiasis [Not Recovered/Not Resolved]

NARRATIVE: CASE EVENT DATE: 20231201
